FAERS Safety Report 9450044 (Version 1)
Quarter: 2013Q3

REPORT INFORMATION
  Report Type: Spontaneous
  Country: US (occurrence: US)
  Receive Date: 20130809
  Receipt Date: 20130809
  Transmission Date: 20140515
  Serious: Yes (Other)
  Sender: FDA-Public Use
  Company Number: US-ASTELLAS-2013US008280

PATIENT
  Age: 92 Year
  Sex: Female

DRUGS (2)
  1. VESICARE [Suspect]
     Indication: PRODUCT USED FOR UNKNOWN INDICATION
     Dosage: 5 MG, UID/QD
     Route: 048
     Dates: start: 201307, end: 20130730
  2. TRAMADOL [Concomitant]
     Indication: PAIN
     Dosage: UNK
     Route: 048

REACTIONS (6)
  - Fall [Unknown]
  - Fracture [Unknown]
  - Lip dry [None]
  - Cheilitis [Unknown]
  - Cheilitis [Unknown]
  - Lip swelling [Unknown]
